FAERS Safety Report 14535437 (Version 2)
Quarter: 2018Q3

REPORT INFORMATION
  Report Type: Spontaneous
  Country: AT (occurrence: AT)
  Receive Date: 20180215
  Receipt Date: 20180816
  Transmission Date: 20181010
  Serious: Yes (Hospitalization, Other)
  Sender: FDA-Public Use
  Company Number: AT-TEVA-2018-AT-855426

PATIENT
  Age: 61 Year
  Sex: Male
  Weight: 68.5 kg

DRUGS (56)
  1. RISPERDAL [Suspect]
     Active Substance: RISPERIDONE
     Dosage: DOSAGE FORM: UNSPECIFIED
     Route: 048
     Dates: start: 20160609, end: 20160609
  2. SEROQUEL [Concomitant]
     Active Substance: QUETIAPINE FUMARATE
     Dosage: DOSAGE FORM: UNSPECIFIED
     Route: 048
     Dates: start: 20160629
  3. OXCARBAZEPINE. [Concomitant]
     Active Substance: OXCARBAZEPINE
     Dosage: DOSAGE FORM: UNKNOWN
     Route: 048
     Dates: start: 20160525, end: 20160525
  4. COLECALCIFEROL?CHOLESTERIN [Concomitant]
     Dosage: DOSAGE FORM: UNSPECIFIED
     Route: 048
  5. COLECALCIFEROL?CHOLESTERIN [Concomitant]
     Dosage: DOSAGE FORM: UNSPECIFIED
     Route: 048
     Dates: start: 20160509, end: 20160509
  6. LACTOBACILLUS ACIDOPHILUS [Concomitant]
     Active Substance: LACTOBACILLUS ACIDOPHILUS
     Dosage: DOSAGE FORM: UNSPECIFIED
     Route: 065
     Dates: start: 20160611, end: 20160621
  7. SERTRALINE [Suspect]
     Active Substance: SERTRALINE HYDROCHLORIDE
     Indication: HYPONATRAEMIA
     Route: 048
     Dates: start: 20160530, end: 20160607
  8. SERTRALINE [Suspect]
     Active Substance: SERTRALINE HYDROCHLORIDE
     Dosage: DOSAGE FORM: UNSPECIFIED
     Route: 048
     Dates: start: 20160603, end: 20160607
  9. RISPERDAL [Concomitant]
     Active Substance: RISPERIDONE
     Route: 048
     Dates: start: 20160630
  10. SEROQUEL [Concomitant]
     Active Substance: QUETIAPINE FUMARATE
     Dosage: DOSAGE FORM: UNSPECIFIED
     Route: 048
     Dates: start: 20160609, end: 20160609
  11. OXCARBAZEPINE. [Concomitant]
     Active Substance: OXCARBAZEPINE
     Dosage: DOSAGE FORM: UNKNOWN
     Route: 048
     Dates: start: 20160324, end: 20160524
  12. TRAZODONE HYDROCHLORIDE. [Concomitant]
     Active Substance: TRAZODONE HYDROCHLORIDE
     Dosage: DOSAGE FORM: UNSPECIFIED
     Route: 048
     Dates: start: 20160526, end: 20160526
  13. CYANOCOBALAMIN W/PYRIDOXINE/THIAMINE [Concomitant]
     Dosage: DOSAGE FORM: UNSPECIFIED
     Route: 048
  14. SERTRALINE [Suspect]
     Active Substance: SERTRALINE HYDROCHLORIDE
     Dosage: DOSAGE FORM: UNSPECIFIED
     Route: 048
     Dates: start: 20160609, end: 20160627
  15. PANTOLOC [Suspect]
     Active Substance: PANTOPRAZOLE SODIUM
     Dosage: DOSAGE FORM: UNSPECIFIED
     Route: 048
     Dates: start: 20160524, end: 20160525
  16. RISPERDAL [Suspect]
     Active Substance: RISPERIDONE
     Dosage: DOSAGE FORM: UNSPECIFIED
     Route: 065
     Dates: start: 20160628, end: 20160628
  17. LYRICA [Concomitant]
     Active Substance: PREGABALIN
     Dosage: DOSAGE FORM: UNSPECIFIED
     Route: 048
     Dates: start: 20160529, end: 20160601
  18. PREGABALIN. [Concomitant]
     Active Substance: PREGABALIN
     Dosage: DOSAGE FORM: UNSPECIFIED
     Dates: start: 20160607, end: 20160609
  19. OXCARBAZEPINE. [Concomitant]
     Active Substance: OXCARBAZEPINE
     Dosage: DOSAGE FORM: UNKNOWN
     Route: 048
     Dates: start: 20160520, end: 20160523
  20. RISPERDAL [Suspect]
     Active Substance: RISPERIDONE
     Indication: PRODUCT USED FOR UNKNOWN INDICATION
     Dosage: DOSAGE FORM: UNSPECIFIED
     Route: 048
     Dates: start: 20160620, end: 20160626
  21. RISPERDAL [Suspect]
     Active Substance: RISPERIDONE
     Dosage: DOSAGE FORM: UNSPECIFIED
     Route: 048
     Dates: start: 20160629, end: 20160629
  22. LYRICA [Concomitant]
     Active Substance: PREGABALIN
     Dosage: DOSAGE FORM: UNSPECIFIED
     Route: 048
     Dates: start: 20160602, end: 20160606
  23. LYRICA [Concomitant]
     Active Substance: PREGABALIN
     Route: 048
     Dates: start: 20160607, end: 20160609
  24. RISPERDAL [Concomitant]
     Active Substance: RISPERIDONE
     Route: 048
     Dates: start: 20160609, end: 20160609
  25. SEROQUEL [Concomitant]
     Active Substance: QUETIAPINE FUMARATE
     Dosage: DOSAGE FORM: UNSPECIFIED
     Route: 048
     Dates: start: 20160519, end: 20160602
  26. TRAZODONE HYDROCHLORIDE. [Concomitant]
     Active Substance: TRAZODONE HYDROCHLORIDE
     Dosage: DOSAGE FORM: UNSPECIFIED
     Route: 048
     Dates: start: 20160504
  27. ESCITALOPRAM [Concomitant]
     Active Substance: ESCITALOPRAM OXALATE
     Dosage: DOSAGE FORM: UNSPECIFIED
     Route: 065
     Dates: start: 20160701
  28. SERTRALINE [Suspect]
     Active Substance: SERTRALINE HYDROCHLORIDE
     Dosage: DOSAGE FORM: UNSPECIFIED
     Route: 048
     Dates: start: 20160608, end: 20160608
  29. PANTOLOC [Suspect]
     Active Substance: PANTOPRAZOLE SODIUM
     Dosage: DOSAGE FORM: UNSPECIFIED
     Route: 048
     Dates: start: 20160505, end: 20160510
  30. RISPERDAL [Suspect]
     Active Substance: RISPERIDONE
     Dosage: DOSAGE FORM: UNSPECIFIED
     Route: 048
     Dates: start: 20160630, end: 20160630
  31. RISPERDAL [Suspect]
     Active Substance: RISPERIDONE
     Dosage: DOSAGE FORM: UNSPECIFIED
     Route: 048
     Dates: start: 20160610, end: 20160619
  32. RISPERDAL [Suspect]
     Active Substance: RISPERIDONE
     Dosage: DOSAGE FORM: UNSPECIFIED
     Route: 048
     Dates: start: 20160627, end: 20160627
  33. RISPERDAL [Concomitant]
     Active Substance: RISPERIDONE
     Route: 048
     Dates: start: 20160610, end: 20160619
  34. RISPERDAL [Concomitant]
     Active Substance: RISPERIDONE
     Route: 048
     Dates: start: 20160629, end: 20160629
  35. RISPERDAL [Concomitant]
     Active Substance: RISPERIDONE
     Route: 048
     Dates: start: 20160627, end: 20160627
  36. HUMULUS LUPULUS EXTRACT [Concomitant]
     Dosage: DOSAGE FORM: UNSPECIFIED
     Route: 048
     Dates: start: 20160520, end: 20160520
  37. SERTRALINE [Suspect]
     Active Substance: SERTRALINE HYDROCHLORIDE
     Dosage: DOSAGE FORM: UNSPECIFIED
     Route: 048
     Dates: start: 20160526, end: 20160529
  38. PANTOLOC [Suspect]
     Active Substance: PANTOPRAZOLE SODIUM
     Dosage: DOSAGE FORM: UNSPECIFIED
     Route: 048
     Dates: start: 20160511, end: 20160703
  39. LYRICA [Concomitant]
     Active Substance: PREGABALIN
     Route: 048
     Dates: start: 20160610
  40. LYRICA [Concomitant]
     Active Substance: PREGABALIN
     Dosage: DOSAGE FORM: UNSPECIFIED
     Route: 048
     Dates: start: 20160525, end: 20160527
  41. OLEOVIT [Concomitant]
     Route: 048
     Dates: start: 20160509
  42. SEROQUEL [Concomitant]
     Active Substance: QUETIAPINE FUMARATE
     Dosage: DOSAGE FORM: UNSPECIFIED
     Route: 048
     Dates: start: 20160603, end: 20160608
  43. SEROQUEL [Concomitant]
     Active Substance: QUETIAPINE FUMARATE
     Dosage: DOSAGE FORM: UNSPECIFIED
     Route: 048
     Dates: start: 20160517, end: 20160518
  44. SEROQUEL [Concomitant]
     Active Substance: QUETIAPINE FUMARATE
     Route: 048
     Dates: start: 20160610, end: 20160627
  45. METOHEXAL [Concomitant]
     Active Substance: METOPROLOL SUCCINATE
     Dosage: SINCE A LONG TIME?DOSAGE FORM: UNSPECIFIED
     Route: 048
  46. ANTIBIOPHILUS [Concomitant]
     Route: 065
     Dates: start: 20160611, end: 20160621
  47. OXCARBAZEPINE. [Concomitant]
     Active Substance: OXCARBAZEPINE
     Dosage: DOSAGE FORM: UNKNOWN
     Route: 048
     Dates: start: 20160519, end: 20160519
  48. COLECALCIFEROL?CHOLESTERIN [Concomitant]
     Dosage: DOSAGE FORM: UNSPECIFIED
     Dates: start: 20160509, end: 20160509
  49. SEROQUEL [Concomitant]
     Active Substance: QUETIAPINE FUMARATE
     Dosage: DOSAGE FORM: UNSPECIFIED
     Route: 048
     Dates: start: 20160510, end: 20160516
  50. MEPRIL [Concomitant]
     Dosage: SINCE A LONG TIME
     Route: 048
  51. TRAZODONE HYDROCHLORIDE. [Concomitant]
     Active Substance: TRAZODONE HYDROCHLORIDE
     Dosage: DOSAGE FORM: UNSPECIFIED
     Route: 048
     Dates: start: 20160505, end: 20160525
  52. SERTRALINE [Suspect]
     Active Substance: SERTRALINE HYDROCHLORIDE
     Indication: PRODUCT USED FOR UNKNOWN INDICATION
     Dosage: DOSAGE FORM: UNSPECIFIED
     Route: 048
     Dates: start: 20160524, end: 20160525
  53. LYRICA [Concomitant]
     Active Substance: PREGABALIN
     Dosage: DOSAGE FORM: UNSPECIFIED
     Route: 048
     Dates: start: 20160528, end: 20160528
  54. SEROQUEL [Concomitant]
     Active Substance: QUETIAPINE FUMARATE
     Dosage: DOSAGE FORM: UNSPECIFIED
     Route: 048
     Dates: start: 20160506, end: 20160509
  55. SEROQUEL [Concomitant]
     Active Substance: QUETIAPINE FUMARATE
     Dosage: DOSAGE FORM: UNSPECIFIED
     Route: 048
     Dates: start: 20160628, end: 20160628
  56. ENALAPRIL [Concomitant]
     Active Substance: ENALAPRIL
     Dosage: DOSAGE FORM: UNSPECIFIED
     Route: 048

REACTIONS (1)
  - Colitis microscopic [Recovered/Resolved]

NARRATIVE: CASE EVENT DATE: 20160610
